FAERS Safety Report 7261198-3 (Version None)
Quarter: 2011Q1

REPORT INFORMATION
  Report Type: 
  Country: None (occurrence: None)
  Receive Date: 20110130
  Receipt Date: 20100917
  Transmission Date: 20110831
  Serious: No
  Sender: FDA-Public Use
  Company Number: US-ABBOTT-10P-163-0671987-00

PATIENT
  Age: 45 Year
  Sex: Female

DRUGS (6)
  1. FOLIC ACID [Concomitant]
     Indication: PRODUCT USED FOR UNKNOWN INDICATION
  2. STEROID [Concomitant]
     Dosage: GTTS TO BOTH EYES
  3. IMURAN [Concomitant]
     Indication: PRODUCT USED FOR UNKNOWN INDICATION
  4. STEROID [Concomitant]
     Indication: PRODUCT USED FOR UNKNOWN INDICATION
     Dosage: GTTS TO BOTH EYES
  5. HUMIRA [Suspect]
     Indication: PRODUCT USED FOR UNKNOWN INDICATION
     Dates: start: 20100801, end: 20100907
  6. METHOTREXATE [Concomitant]
     Indication: PRODUCT USED FOR UNKNOWN INDICATION
     Dosage: 3 PILLS

REACTIONS (2)
  - CONTUSION [None]
  - IRITIS [None]
